FAERS Safety Report 8481819-7 (Version None)
Quarter: 2012Q3

REPORT INFORMATION
  Report Type: 
  Country: None (occurrence: None)
  Receive Date: 20120702
  Receipt Date: 20120625
  Transmission Date: 20120928
  Serious: No
  Sender: FDA-Public Use
  Company Number: US-PFIZER INC-2012152765

PATIENT
  Sex: Female
  Weight: 54.422 kg

DRUGS (4)
  1. LYRICA [Suspect]
     Indication: TRIGEMINAL NEURALGIA
     Dosage: 25MG IN THE MORNING AND 75 MG IN THE AFTERNOON
     Route: 048
     Dates: start: 20120601, end: 20120601
  2. LYRICA [Suspect]
     Dosage: 25 MG, 4X/DAY
     Route: 048
     Dates: start: 20120601
  3. VICODIN [Concomitant]
     Indication: PAIN
     Dosage: HALF A TABLET
  4. AMBIEN [Concomitant]
     Indication: INSOMNIA
     Dosage: UNK

REACTIONS (7)
  - VISION BLURRED [None]
  - FRUSTRATION [None]
  - IMPAIRED DRIVING ABILITY [None]
  - EMOTIONAL DISORDER [None]
  - FEELING ABNORMAL [None]
  - DIZZINESS [None]
  - DRUG INEFFECTIVE [None]
